FAERS Safety Report 22257407 (Version 2)
Quarter: 2023Q2

REPORT INFORMATION
  Report Type: Report from Study
  Country: US (occurrence: US)
  Receive Date: 20230427
  Receipt Date: 20230615
  Transmission Date: 20230722
  Serious: Yes (Other)
  Sender: FDA-Public Use
  Company Number: US-ABBVIE-4742649

PATIENT
  Age: 52 Year
  Sex: Female

DRUGS (1)
  1. HUMIRA [Suspect]
     Active Substance: ADALIMUMAB
     Indication: Hidradenitis
     Dosage: FORM STRENGTH: 40 MG CITRATE FREE
     Route: 058
     Dates: start: 20220729

REACTIONS (7)
  - Pulmonary thrombosis [Not Recovered/Not Resolved]
  - Food intolerance [Not Recovered/Not Resolved]
  - Impaired healing [Not Recovered/Not Resolved]
  - Hidradenitis [Not Recovered/Not Resolved]
  - Gait inability [Not Recovered/Not Resolved]
  - Haemorrhage [Unknown]
  - Rash [Not Recovered/Not Resolved]

NARRATIVE: CASE EVENT DATE: 20230410
